FAERS Safety Report 6132661-3 (Version None)
Quarter: 2009Q1

REPORT INFORMATION
  Report Type: 
  Country: None (occurrence: None)
  Receive Date: 20090324
  Receipt Date: 20090311
  Transmission Date: 20090719
  Serious: Yes (Hospitalization, Other)
  Sender: FDA-Public Use
  Company Number: 187944USA

PATIENT
  Age: 49 Year
  Sex: Male

DRUGS (2)
  1. METHOTREXATE [Suspect]
     Indication: MULTIPLE SCLEROSIS
     Dosage: 7.5 MG PER WEEK (1 IN 1 WEEK)
     Dates: start: 20070701, end: 20070901
  2. WARFARIN SODIUM [Concomitant]

REACTIONS (4)
  - CARDIAC FAILURE CONGESTIVE [None]
  - HEPATIC FAILURE [None]
  - HEPATOMEGALY [None]
  - LIVER INJURY [None]
